FAERS Safety Report 14772554 (Version 2)
Quarter: 2018Q2

REPORT INFORMATION
  Report Type: Report from Study
  Country: DE (occurrence: DE)
  Receive Date: 20180418
  Receipt Date: 20180622
  Transmission Date: 20180711
  Serious: Yes (Hospitalization, Other)
  Sender: FDA-Public Use
  Company Number: DE-BAXTER-2018BAX000442

PATIENT
  Age: 34 Month
  Sex: Male
  Weight: 12.2 kg

DRUGS (77)
  1. METHOTREXATE. [Suspect]
     Active Substance: METHOTREXATE
     Dosage: REGULARY APPLICATION VIA THERAPY ELEMENT HR3 ()
     Route: 037
  2. ASPARAGINASE [Suspect]
     Active Substance: ASPARAGINASE
     Indication: PHILADELPHIA CHROMOSOME POSITIVE
     Dosage: 5400 IU, UNK
     Route: 042
     Dates: start: 20160313
  3. ASPARAGINASE [Suspect]
     Active Substance: ASPARAGINASE
     Dosage: DSE- RE-INTRODUCED
     Route: 042
  4. CYTARABINE. [Suspect]
     Active Substance: CYTARABINE
     Dosage: DAILY DOSE: 41 MG MILLIGRAM(S) EVERY DAY, QD
     Route: 042
     Dates: start: 20151102, end: 20151105
  5. VINCRISTIN [Suspect]
     Active Substance: VINCRISTINE
     Dosage: DAILY DOSE: 0.8 MG MILLIGRAM(S) EVERY
     Route: 042
     Dates: start: 20160620
  6. DOXORUBICIN [Suspect]
     Active Substance: DOXORUBICIN
     Indication: PHILADELPHIA CHROMOSOME POSITIVE
     Dosage: 13.5 MG, UNK
     Route: 042
     Dates: start: 20160704
  7. DOXORUBICIN [Suspect]
     Active Substance: DOXORUBICIN
     Dosage: 13.5 MG, UNK
     Route: 042
     Dates: start: 20160310
  8. ETOPOSIDE. [Suspect]
     Active Substance: ETOPOSIDE
     Indication: ACUTE LYMPHOCYTIC LEUKAEMIA
     Dosage: 52 MG, UNK (5 APPLICATIONS TO 52 MG)
     Route: 042
     Dates: start: 20160206, end: 20160208
  9. VINDESINE [Suspect]
     Active Substance: VINDESINE
     Indication: PHILADELPHIA CHROMOSOME POSITIVE
     Dosage: 1.6 MG, UNK
     Route: 042
  10. ENDOXAN 1G [Suspect]
     Active Substance: CYCLOPHOSPHAMIDE
     Dosage: 570 MG, UNK
     Route: 042
     Dates: start: 20160730, end: 20160730
  11. METHOTREXATE. [Suspect]
     Active Substance: METHOTREXATE
     Dosage: DOSE RE-INTRODUCED
     Route: 065
  12. ASPARAGINASE [Suspect]
     Active Substance: ASPARAGINASE
     Dosage: 5400 IU, UNK
     Route: 042
  13. ASPARAGINASE [Suspect]
     Active Substance: ASPARAGINASE
     Dosage: 5400 IU, UNK
     Route: 042
     Dates: start: 20160630
  14. ASPARAGINASE [Suspect]
     Active Substance: ASPARAGINASE
     Dosage: 5400 IU, UNK
     Route: 042
     Dates: start: 20160306
  15. CYTARABINE. [Suspect]
     Active Substance: CYTARABINE
     Dosage: 42 MG, UNK
     Route: 042
  16. CYTARABINE. [Suspect]
     Active Substance: CYTARABINE
     Dosage: 42 MG, UNK
     Route: 042
  17. VINCRISTIN [Suspect]
     Active Substance: VINCRISTINE
     Dosage: 1.6 UNK, UNK ; IN TOTAL
     Route: 042
     Dates: start: 20160119, end: 20160119
  18. VINCRISTIN [Suspect]
     Active Substance: VINCRISTINE
     Dosage: 0.8 MG, ONCE/SINGLE ; IN TOTAL
     Route: 042
     Dates: start: 20160303, end: 20160303
  19. DOXORUBICIN [Suspect]
     Active Substance: DOXORUBICIN
     Dosage: 13.5 MG, UNK
     Route: 042
     Dates: start: 20160712
  20. DOXORUBICIN [Suspect]
     Active Substance: DOXORUBICIN
     Dosage: 13.5 MG, UNK
     Route: 042
     Dates: start: 20160620
  21. DOXORUBICIN [Suspect]
     Active Substance: DOXORUBICIN
     Route: 065
  22. VINDESINE [Suspect]
     Active Substance: VINDESINE
     Indication: ACUTE LYMPHOCYTIC LEUKAEMIA
     Dosage: 1.6 MG, UNK
     Route: 042
     Dates: start: 20160119, end: 20160119
  23. METHOTREXATE. [Suspect]
     Active Substance: METHOTREXATE
     Route: 048
  24. ASPARAGINASE [Suspect]
     Active Substance: ASPARAGINASE
     Dosage: DAILY DOSE: 13500 IU INTERNATIONAL UNIT(S) EVERY DAY
     Route: 042
     Dates: start: 20151223, end: 20151223
  25. ASPARAGINASE [Suspect]
     Active Substance: ASPARAGINASE
     Dosage: DAILY DOSE: 13000 IU INTERNATIONAL UNIT(S) EVERY DAY
     Route: 042
     Dates: start: 20160209, end: 20160209
  26. CYTARABINE. [Suspect]
     Active Substance: CYTARABINE
     Dosage: UNK
     Route: 037
     Dates: start: 20160208, end: 20160208
  27. CYTARABINE. [Suspect]
     Active Substance: CYTARABINE
     Dosage: DOSE RE-INTRODUCED
     Route: 065
  28. DOXORUBICIN [Suspect]
     Active Substance: DOXORUBICIN
     Dosage: 13.5 MG, UNK
     Route: 042
     Dates: start: 20160627
  29. DOXORUBICIN [Suspect]
     Active Substance: DOXORUBICIN
     Dosage: 13.5 MG, UNK
     Route: 042
     Dates: start: 20160324
  30. DOXORUBICIN [Suspect]
     Active Substance: DOXORUBICIN
     Dosage: DOSE RE-INTRODUCED
     Route: 065
  31. MERCAPTOPURINE. [Suspect]
     Active Substance: MERCAPTOPURINE
     Dosage: DOSE RE-INTRODUCED
     Route: 048
  32. ENDOXAN 1G [Suspect]
     Active Substance: CYCLOPHOSPHAMIDE
     Indication: PHILADELPHIA CHROMOSOME POSITIVE
     Dosage: DAILY DOSE: 550 MG MILLIGRAM(S) EVERY DAY
     Route: 042
     Dates: start: 20151203, end: 20151203
  33. CYTARABINE. [Suspect]
     Active Substance: CYTARABINE
     Indication: PHILADELPHIA CHROMOSOME POSITIVE
     Dosage: DAILY DOSE: 41 MG MILLIGRAM(S) EVERY DAY
     Route: 042
     Dates: start: 20151109, end: 20151112
  34. CYTARABINE. [Suspect]
     Active Substance: CYTARABINE
     Dosage: DAILY DOSE: 41 MG MILLIGRAM(S) EVERY DAY
     Route: 042
     Dates: start: 20151019, end: 20151222
  35. CYTARABINE. [Suspect]
     Active Substance: CYTARABINE
     Dosage: 42 MG, UNK
     Route: 042
  36. VINCRISTIN [Suspect]
     Active Substance: VINCRISTINE
     Dosage: 1.6 MG, UNK
     Route: 042
  37. MERCAPTOPURINE. [Suspect]
     Active Substance: MERCAPTOPURINE
     Indication: PRODUCT USED FOR UNKNOWN INDICATION
     Dosage: UNK ()
     Route: 048
  38. ENDOXAN 1G [Suspect]
     Active Substance: CYCLOPHOSPHAMIDE
     Dosage: 110 MG, UNK (5 APPLICATIONS TO 110 MG)
     Route: 042
     Dates: start: 20151219, end: 20151221
  39. DAUNORUBICIN [Suspect]
     Active Substance: DAUNORUBICIN
     Indication: PHILADELPHIA CHROMOSOME POSITIVE
     Dosage: DAILY DOSE: 16 MG MILLIGRAM(S) EVERY DAY, QD
     Route: 042
     Dates: start: 20160118, end: 20160119
  40. CYTARABINE. [Suspect]
     Active Substance: CYTARABINE
     Dosage: DAILY DOSE: 2160 MG MILLIGRAM(S) EVERY DAY
     Route: 042
     Dates: start: 20151221
  41. CYTARABINE. [Suspect]
     Active Substance: CYTARABINE
     Dosage: 42 MG, UNK
     Route: 042
  42. VINCRISTIN [Suspect]
     Active Substance: VINCRISTINE
     Indication: ACUTE LYMPHOCYTIC LEUKAEMIA
     Dosage: DAILY DOSE: 0.8 MG MILLIGRAM(S) EVERY
     Route: 042
     Dates: start: 20160704
  43. VINCRISTIN [Suspect]
     Active Substance: VINCRISTINE
     Dosage: DAILY DOSE: 0.8 MG MILLIGRAM(S) EVERY
     Route: 042
     Dates: start: 20160712
  44. VINCRISTIN [Suspect]
     Active Substance: VINCRISTINE
     Dosage: 1.6 MG, UNK
     Route: 042
     Dates: start: 20160114
  45. GLIVEC [Suspect]
     Active Substance: IMATINIB MESYLATE
     Indication: SYSTEMIC SCLERODERMA
     Dosage: DOSE RE-INTRODUCED
     Route: 048
  46. ETOPOSIDE. [Suspect]
     Active Substance: ETOPOSIDE
     Indication: PHILADELPHIA CHROMOSOME POSITIVE
     Dosage: DOSE RE-INTRODUCED
     Route: 065
  47. VINDESINE [Suspect]
     Active Substance: VINDESINE
     Dosage: DOSE RE-INTRODUCED
     Route: 042
  48. HOLOXAN [Suspect]
     Active Substance: IFOSFAMIDE
     Indication: ACUTE LYMPHOCYTIC LEUKAEMIA
     Dosage: DAILY DOSE: 416 MG MILLIGRAM(S) EVERY DAY QD
     Route: 042
     Dates: start: 20160115, end: 20160117
  49. ENDOXAN 1G [Suspect]
     Active Substance: CYCLOPHOSPHAMIDE
     Indication: ACUTE LYMPHOCYTIC LEUKAEMIA
     Dosage: DAILY DOSE: 550 MG MILLIGRAM(S) EVERY DAY
     Route: 042
     Dates: start: 20151017, end: 20151017
  50. METHOTREXATE. [Suspect]
     Active Substance: METHOTREXATE
     Indication: ACUTE LYMPHOCYTIC LEUKAEMIA
     Dosage: DAILY DOSE: 2700 MG MILLIGRAM(S) EVERY DAY
     Route: 042
     Dates: start: 20151218, end: 20151219
  51. ASPARAGINASE [Suspect]
     Active Substance: ASPARAGINASE
     Dosage: DAILY DOSE: 1300 IU INTERNATIONAL UNIT(S) EVERY DAY, QD
     Route: 042
     Dates: start: 20160303
  52. ASPARAGINASE [Suspect]
     Active Substance: ASPARAGINASE
     Dosage: 5400 IU, UNK
     Route: 042
  53. ASPARAGINASE [Suspect]
     Active Substance: ASPARAGINASE
     Dosage: DAILY DOSE: 1300 IU INTERNATIONAL UNIT(S) EVERY DAY
     Route: 042
  54. VINCRISTIN [Suspect]
     Active Substance: VINCRISTINE
     Dosage: DAILY DOSE: 0.8 MG MILLIGRAM(S) EVERY
     Route: 042
     Dates: start: 20160317
  55. VINCRISTIN [Suspect]
     Active Substance: VINCRISTINE
     Dosage: DAILY DOSE: 0.8 MG MILLIGRAM(S) EVERY
     Route: 042
     Dates: start: 20160627
  56. GLIVEC [Suspect]
     Active Substance: IMATINIB MESYLATE
     Indication: ACUTE LYMPHOCYTIC LEUKAEMIA
     Dosage: DAILY DOSE: 150 MG MILLIGRAM(S) EVERY DAY, QD
     Route: 048
     Dates: start: 20150921, end: 20170307
  57. DOXORUBICIN [Suspect]
     Active Substance: DOXORUBICIN
     Dosage: 13.5 MG, UNK
     Route: 042
     Dates: start: 20160303
  58. HOLOXAN [Suspect]
     Active Substance: IFOSFAMIDE
     Dosage: DOSE RE-INTRODUCED
     Route: 065
  59. ENDOXAN 1G [Suspect]
     Active Substance: CYCLOPHOSPHAMIDE
     Dosage: DOSE RE-INTRODUCED
     Route: 042
  60. METHOTREXATE. [Suspect]
     Active Substance: METHOTREXATE
     Indication: PHILADELPHIA CHROMOSOME POSITIVE
     Dosage: DAILY DOSE: 2600 MG MILLIGRAM(S) EVERY DAY, QD (1 APPLICATION ABOUT 24 HOURS)
     Route: 042
     Dates: start: 20160114, end: 20160115
  61. ASPARAGINASE [Suspect]
     Active Substance: ASPARAGINASE
     Indication: ACUTE LYMPHOCYTIC LEUKAEMIA
     Dosage: 5400 IU, UNK
     Route: 042
  62. ASPARAGINASE [Suspect]
     Active Substance: ASPARAGINASE
     Dosage: 5400 IU, UNK
     Route: 042
     Dates: start: 20160627
  63. ASPARAGINASE [Suspect]
     Active Substance: ASPARAGINASE
     Dosage: 5400 IU, UNK
     Route: 042
     Dates: start: 20160310
  64. VINCRISTIN [Suspect]
     Active Substance: VINCRISTINE
     Dosage: DAILY DOSE: 0.8 MG MILLIGRAM(S) EVERY
     Route: 042
     Dates: start: 20160324
  65. VINCRISTIN [Suspect]
     Active Substance: VINCRISTINE
     Dosage: DAILY DOSE: 0.8 MG MILLIGRAM(S) EVERY
     Route: 042
     Dates: start: 20151218
  66. GLIVEC [Suspect]
     Active Substance: IMATINIB MESYLATE
     Indication: PHILADELPHIA CHROMOSOME POSITIVE
     Route: 048
  67. HOLOXAN [Suspect]
     Active Substance: IFOSFAMIDE
     Indication: PHILADELPHIA CHROMOSOME POSITIVE
     Route: 065
  68. ENDOXAN 1G [Suspect]
     Active Substance: CYCLOPHOSPHAMIDE
     Dosage: 560 MG, UNK
     Route: 042
     Dates: start: 20160416, end: 20160416
  69. DAUNORUBICIN [Suspect]
     Active Substance: DAUNORUBICIN
     Indication: ACUTE LYMPHOCYTIC LEUKAEMIA
     Route: 065
  70. ASPARAGINASE [Suspect]
     Active Substance: ASPARAGINASE
     Dosage: 5400 IU, UNK
     Route: 042
     Dates: start: 20160620
  71. CYTARABINE. [Suspect]
     Active Substance: CYTARABINE
     Indication: ACUTE LYMPHOCYTIC LEUKAEMIA
     Dosage: DAILY DOSE: 41 MG MILLIGRAM(S) EVERY DAY
     Route: 042
     Dates: start: 20151026, end: 20151029
  72. CYTARABINE. [Suspect]
     Active Substance: CYTARABINE
     Dosage: 1040 MG, UNK (4 APPLICATIONS TO 1040 MG)
     Route: 042
     Dates: start: 20160204, end: 20160206
  73. VINCRISTIN [Suspect]
     Active Substance: VINCRISTINE
     Indication: PHILADELPHIA CHROMOSOME POSITIVE
     Dosage: DAILY DOSE: 0.8 MG MILLIGRAM(S) EVERY
     Route: 042
     Dates: start: 20160310
  74. VINCRISTIN [Suspect]
     Active Substance: VINCRISTINE
     Dosage: 0.8 MG, ONCE/SINGLE ; IN TOTAL
     Route: 042
     Dates: start: 20151223, end: 20151223
  75. VINCRISTIN [Suspect]
     Active Substance: VINCRISTINE
     Dosage: DOSE RE-INTRODUCED
     Route: 042
  76. DOXORUBICIN [Suspect]
     Active Substance: DOXORUBICIN
     Indication: ACUTE LYMPHOCYTIC LEUKAEMIA
     Dosage: 13.5 MG, UNK
     Route: 042
  77. ETOPOSIDE. [Suspect]
     Active Substance: ETOPOSIDE
     Route: 065

REACTIONS (21)
  - Febrile neutropenia [Recovered/Resolved]
  - Constipation [Unknown]
  - Upper respiratory tract infection [Recovered/Resolved]
  - Pyrexia [Unknown]
  - Febrile neutropenia [Recovered/Resolved]
  - Febrile neutropenia [Recovered/Resolved]
  - Febrile neutropenia [Recovered/Resolved]
  - Stomatitis [Unknown]
  - Neutropenia [Recovered/Resolved]
  - Hypoxia [Unknown]
  - Muscular weakness [Unknown]
  - Neutropenia [Recovered/Resolved]
  - Hypoxia [Recovered/Resolved]
  - Neutropenia [Recovered/Resolved]
  - Neutropenia [Recovered/Resolved]
  - Urinary tract infection [Unknown]
  - Neutropenia [Recovered/Resolved]
  - Febrile neutropenia [Recovered/Resolved]
  - Lymphopenia [Unknown]
  - Infectious colitis [Unknown]
  - Pruritus [Unknown]

NARRATIVE: CASE EVENT DATE: 20151110
